FAERS Safety Report 25410930 (Version 1)
Quarter: 2025Q2

REPORT INFORMATION
  Report Type: Spontaneous
  Country: GB (occurrence: GB)
  Receive Date: 20250609
  Receipt Date: 20250609
  Transmission Date: 20250716
  Serious: Yes (Other)
  Sender: TEVA
  Company Number: GB-MHRA-TPP16040124C9251905YC1749059362698

PATIENT
  Age: 16 Year
  Sex: Female
  Weight: 6 kg

DRUGS (2)
  1. PROPRANOLOL [Suspect]
     Active Substance: PROPRANOLOL HYDROCHLORIDE
     Indication: Product used for unknown indication
     Route: 065
     Dates: start: 20250527
  2. CYANOCOBALAMIN [Concomitant]
     Active Substance: CYANOCOBALAMIN
     Indication: Ill-defined disorder
     Dosage: CYANOCOB12
     Dates: start: 20250521

REACTIONS (3)
  - Dyspnoea [Recovered/Resolved]
  - Drug intolerance [Unknown]
  - Tachycardia [Recovered/Resolved]
